FAERS Safety Report 5812277-6 (Version None)
Quarter: 2008Q3

REPORT INFORMATION
  Report Type: 
  Country: None (occurrence: None)
  Receive Date: 20080716
  Receipt Date: 20080709
  Transmission Date: 20090109
  Serious: Yes (Hospitalization)
  Sender: FDA-Public Use
  Company Number: PHHO2008IL08624

PATIENT
  Sex: Male

DRUGS (7)
  1. AREDIA [Suspect]
     Dosage: UNK
     Dates: start: 20080623, end: 20080623
  2. LENALIDOMIDE [Suspect]
     Indication: MULTIPLE MYELOMA
     Dosage: 10 MG, UNK
     Route: 048
     Dates: start: 20080602, end: 20080622
  3. LENALIDOMIDE [Suspect]
     Dosage: UNK
     Dates: start: 20080623
  4. PREDNISONE TAB [Suspect]
     Indication: MULTIPLE MYELOMA
     Dosage: 2 MG/KG, QD
     Dates: start: 20080602, end: 20080605
  5. PREDNISONE TAB [Suspect]
     Dosage: UNK
     Dates: start: 20080606
  6. MELPHALAN [Suspect]
     Indication: MULTIPLE MYELOMA
     Dosage: 0.18 MG/KG, QD
     Dates: start: 20080602, end: 20080605
  7. MELPHALAN [Suspect]
     Dosage: UNK
     Dates: start: 20080606

REACTIONS (2)
  - CELLULITIS [None]
  - PYREXIA [None]
